FAERS Safety Report 5922159-7 (Version None)
Quarter: 2008Q4

REPORT INFORMATION
  Report Type: 
  Country: None (occurrence: None)
  Receive Date: 20081017
  Receipt Date: 20081008
  Transmission Date: 20090506
  Serious: Yes (Hospitalization)
  Sender: FDA-Public Use
  Company Number: FR-ASTRAZENECA-2008CG01475

PATIENT
  Age: 162 Month
  Sex: Male

DRUGS (2)
  1. ZESTRIL [Suspect]
     Indication: AORTIC VALVE INCOMPETENCE
     Route: 048
     Dates: start: 20080228, end: 20080407
  2. ZESTRIL [Suspect]
     Route: 048
     Dates: start: 20080408, end: 20080501

REACTIONS (1)
  - JAUNDICE [None]
